FAERS Safety Report 7948713-9 (Version None)
Quarter: 2011Q4

REPORT INFORMATION
  Report Type: 
  Country: None (occurrence: None)
  Receive Date: 20111128
  Receipt Date: 20111128
  Transmission Date: 20120403
  Serious: No
  Sender: FDA-Public Use
  Company Number: None

PATIENT
  Age: 72 Year
  Sex: Male
  Weight: 100 kg

DRUGS (1)
  1. GABAPENTIN [Suspect]
     Indication: NEURALGIA
     Dosage: 300 MG TID PO
     Route: 048
     Dates: start: 20111112, end: 20111112

REACTIONS (3)
  - RASH [None]
  - URTICARIA [None]
  - PRURITUS [None]
